FAERS Safety Report 5171682-4 (Version None)
Quarter: 2006Q4

REPORT INFORMATION
  Report Type: 
  Country: None (occurrence: None)
  Receive Date: 20061205
  Receipt Date: 20061120
  Transmission Date: 20070319
  Serious: Yes (Hospitalization, Other)
  Sender: FDA-Public Use
  Company Number: 2006144737

PATIENT
  Age: 55 Year
  Sex: Male
  Weight: 82.5547 kg

DRUGS (7)
  1. LIPITOR [Suspect]
     Indication: BLOOD CHOLESTEROL INCREASED
     Dates: start: 20000101, end: 20040101
  2. CELEBREX [Suspect]
     Indication: OEDEMA PERIPHERAL
     Dates: start: 20000101, end: 20040101
  3. NORVASC [Concomitant]
  4. METOPROLOL TARTRATE [Concomitant]
  5. DIGOXIN [Concomitant]
  6. ACCUPRIL [Concomitant]
  7. LASIX [Concomitant]

REACTIONS (4)
  - CARDIAC FAILURE [None]
  - INTRACARDIAC THROMBUS [None]
  - MEDICAL DEVICE IMPLANTATION [None]
  - MYOCARDIAL INFARCTION [None]
